FAERS Safety Report 12590812 (Version 1)
Quarter: 2016Q3

REPORT INFORMATION
  Report Type: Spontaneous
  Country: BR (occurrence: BR)
  Receive Date: 20160726
  Receipt Date: 20160726
  Transmission Date: 20161109
  Serious: Yes (Other)
  Sender: FDA-Public Use
  Company Number: BR-AMGEN-BRASP2014066072

PATIENT
  Age: 52 Year
  Sex: Female
  Weight: 86 kg

DRUGS (8)
  1. ENBREL [Suspect]
     Active Substance: ETANERCEPT
     Indication: RHEUMATOID ARTHRITIS
     Dosage: 50 MG, WEEKLY
     Route: 058
     Dates: start: 20140801
  2. ZOLPIDEM [Concomitant]
     Active Substance: ZOLPIDEM\ZOLPIDEM TARTRATE
     Dosage: 1 TABLET OF 10 MG, ONCE DAILY
  3. LEFLUNOMIDE. [Concomitant]
     Active Substance: LEFLUNOMIDE
     Dosage: UNK
  4. VENLAFAXINE HYDROCHLORIDE. [Concomitant]
     Active Substance: VENLAFAXINE HYDROCHLORIDE
     Dosage: 1 TABLET OF 75 MG, ONCE A DAY
  5. GABAPENTIN. [Concomitant]
     Active Substance: GABAPENTIN
     Dosage: 1 TABLET OF 300 MG AT NIGHT
  6. ISONIAZID. [Concomitant]
     Active Substance: ISONIAZID
     Indication: TUBERCULIN TEST POSITIVE
     Dosage: 1 TABLET OF 100 MG, THREE TIMES DAILY
     Dates: start: 201406
  7. OMEPRAZOLE. [Concomitant]
     Active Substance: OMEPRAZOLE
     Dosage: 2 TABLETS OF 20 MG (40 MG), TWICE DAILY
  8. PREDNISONE. [Concomitant]
     Active Substance: PREDNISONE
     Dosage: 1 TABLET OF 20 MG, ONCE DAILY
     Route: 048

REACTIONS (12)
  - Feeling cold [Unknown]
  - Injection site erythema [Not Recovered/Not Resolved]
  - Fatigue [Unknown]
  - Injection site oedema [Unknown]
  - Blood pressure increased [Unknown]
  - Malaise [Unknown]
  - Injection site bruising [Unknown]
  - Injection site discolouration [Not Recovered/Not Resolved]
  - Eyelid cyst [Unknown]
  - Headache [Unknown]
  - Injection site hypersensitivity [Unknown]
  - Injection site reaction [Unknown]

NARRATIVE: CASE EVENT DATE: 2014
